FAERS Safety Report 5692661-4 (Version None)
Quarter: 2008Q2

REPORT INFORMATION
  Report Type: 
  Country: None (occurrence: None)
  Receive Date: 20080401
  Receipt Date: 20080318
  Transmission Date: 20081010
  Serious: Yes (Hospitalization)
  Sender: FDA-Public Use
  Company Number: 2007BI008146

PATIENT
  Age: 50 Year
  Sex: Female

DRUGS (6)
  1. AVONEX [Suspect]
     Indication: MULTIPLE SCLEROSIS
     Dosage: 30 UG; QW; IM
     Route: 030
     Dates: start: 20000801
  2. DIAZEPAM [Concomitant]
  3. CLONAZEPAM [Concomitant]
  4. NEURONTIN [Concomitant]
  5. FIORICET W/ CODEINE [Concomitant]
  6. TEMAZEPAM [Concomitant]

REACTIONS (15)
  - FALL [None]
  - FATIGUE [None]
  - FRACTURE MALUNION [None]
  - HEAD INJURY [None]
  - JOINT DISLOCATION [None]
  - LOSS OF CONSCIOUSNESS [None]
  - LOWER LIMB FRACTURE [None]
  - MEDICAL DEVICE COMPLICATION [None]
  - PAIN IN EXTREMITY [None]
  - PATELLA FRACTURE [None]
  - SENSORY LOSS [None]
  - SURGICAL FAILURE [None]
  - UNEVALUABLE EVENT [None]
  - VASCULAR INJURY [None]
  - VASCULAR RUPTURE [None]
